FAERS Safety Report 23036788 (Version 1)
Quarter: 2023Q4

REPORT INFORMATION
  Report Type: Report from Study
  Country: US (occurrence: US)
  Receive Date: 20231006
  Receipt Date: 20231006
  Transmission Date: 20240110
  Serious: Yes (Other)
  Sender: FDA-Public Use
  Company Number: US-JNJFOC-20231003920

PATIENT
  Age: 56 Year
  Sex: Male

DRUGS (22)
  1. SPRAVATO [Suspect]
     Active Substance: ESKETAMINE
     Indication: Depression
     Dosage: 56 MG, 9 TOTAL DOSES
     Dates: start: 20210728, end: 20211022
  2. SPRAVATO [Suspect]
     Active Substance: ESKETAMINE
     Dosage: 84 MG, 7 TOTAL DOSES
     Dates: start: 20211026, end: 20211222
  3. SPRAVATO [Suspect]
     Active Substance: ESKETAMINE
     Dosage: 56 MG, 16 TOTAL DOSES
     Dates: start: 20220112, end: 20221222
  4. SPRAVATO [Suspect]
     Active Substance: ESKETAMINE
     Dosage: 70 MG, 1 TOTAL DOSES
     Dates: start: 20221227, end: 20221227
  5. SPRAVATO [Suspect]
     Active Substance: ESKETAMINE
     Dosage: 56 MG, 1 TOTAL DOSES
     Dates: start: 20230103, end: 20230103
  6. SPRAVATO [Suspect]
     Active Substance: ESKETAMINE
     Dosage: 70 MG, 2 TOTAL DOSES
     Dates: start: 20230119, end: 20230125
  7. SPRAVATO [Suspect]
     Active Substance: ESKETAMINE
     Dosage: 84 MG, 2 TOTAL DOSES
     Dates: start: 20230202, end: 20230209
  8. SPRAVATO [Suspect]
     Active Substance: ESKETAMINE
     Dosage: 56 MG, 1 TOTAL DOSES
     Dates: start: 20230215, end: 20230215
  9. SPRAVATO [Suspect]
     Active Substance: ESKETAMINE
     Dosage: 84 MG, 5 TOTAL DOSES
     Dates: start: 20230302, end: 20230406
  10. SPRAVATO [Suspect]
     Active Substance: ESKETAMINE
     Dosage: 56 MG, 1 TOTAL DOSES
     Dates: start: 20230412, end: 20230412
  11. SPRAVATO [Suspect]
     Active Substance: ESKETAMINE
     Dosage: 84 MG, 1 TOTAL DOSES
     Dates: start: 20230504, end: 20230504
  12. SPRAVATO [Suspect]
     Active Substance: ESKETAMINE
     Dosage: 56 MG, 1 TOTAL DOSES
     Dates: start: 20230511, end: 20230511
  13. SPRAVATO [Suspect]
     Active Substance: ESKETAMINE
     Dosage: 70MG, 2 TOTAL DOSES
     Dates: start: 20230518, end: 20230601
  14. SPRAVATO [Suspect]
     Active Substance: ESKETAMINE
     Dosage: 84 MG, 1 TOTAL DOSES
     Dates: start: 20230615, end: 20230615
  15. SPRAVATO [Suspect]
     Active Substance: ESKETAMINE
     Dosage: 56 MG, 2 TOTAL DOSES
     Dates: start: 20230629, end: 20230706
  16. SPRAVATO [Suspect]
     Active Substance: ESKETAMINE
     Dosage: 84 MG, 1 TOTAL DOSES
     Dates: start: 20230713, end: 20230713
  17. SPRAVATO [Suspect]
     Active Substance: ESKETAMINE
     Dosage: 56 MG, 1 TOTAL DOSES
     Dates: start: 20230727, end: 20230727
  18. SPRAVATO [Suspect]
     Active Substance: ESKETAMINE
     Dosage: 70 MG, 2 TOTAL DOSES
     Dates: start: 20230803, end: 20230810
  19. SPRAVATO [Suspect]
     Active Substance: ESKETAMINE
     Dosage: 84MG, 1 TOTAL DOSES
     Dates: start: 20230816, end: 20230816
  20. SPRAVATO [Suspect]
     Active Substance: ESKETAMINE
     Dosage: 56 MG, 1 TOTAL DOSES
     Dates: start: 20230824, end: 20230824
  21. SPRAVATO [Suspect]
     Active Substance: ESKETAMINE
     Dosage: 84 MG, 1 TOTAL DOSES
     Dates: start: 20230913, end: 20230913
  22. SPRAVATO [Suspect]
     Active Substance: ESKETAMINE
     Dosage: 84 MG, 1 TOTAL DOSES
     Dates: start: 20230927, end: 20230927

REACTIONS (5)
  - Hyperhidrosis [Recovered/Resolved]
  - Vomiting [Recovered/Resolved]
  - Dizziness [Recovered/Resolved]
  - Sedation [Recovered/Resolved]
  - Dissociation [Recovered/Resolved]

NARRATIVE: CASE EVENT DATE: 20230927
